FAERS Safety Report 22587605 (Version 2)
Quarter: 2023Q2

REPORT INFORMATION
  Report Type: Spontaneous
  Country: US (occurrence: US)
  Receive Date: 20230612
  Receipt Date: 20230621
  Transmission Date: 20230721
  Serious: No
  Sender: FDA-Public Use
  Company Number: US-LUPIN PHARMACEUTICALS INC.-2023-04448

PATIENT

DRUGS (3)
  1. ALBUTEROL SULFATE [Suspect]
     Active Substance: ALBUTEROL SULFATE
     Indication: Chronic obstructive pulmonary disease
     Dosage: UNK, 2 PUFFS BY MOUTH AS NEEDED EVERY 4 HOURS
     Dates: start: 20230516
  2. ALBUTEROL SULFATE [Suspect]
     Active Substance: ALBUTEROL SULFATE
     Dosage: UNK, 2 PUFFS BY MOUTH AS NEEDED EVERY 4 HOURS
  3. CHOLINE SALICYLATE\MAGNESIUM SALICYLATE [Concomitant]
     Active Substance: CHOLINE SALICYLATE\MAGNESIUM SALICYLATE
     Indication: Product used for unknown indication
     Dosage: 200 MILLIGRAM, QD (ONCE A DAY)
     Route: 065

REACTIONS (4)
  - Dyspnoea [Unknown]
  - Drug dose omission by device [Unknown]
  - Device delivery system issue [Unknown]
  - Device deposit issue [Unknown]
